FAERS Safety Report 20138765 (Version 2)
Quarter: 2021Q4

REPORT INFORMATION
  Report Type: Spontaneous
  Country: JP (occurrence: JP)
  Receive Date: 20211202
  Receipt Date: 20211214
  Transmission Date: 20220303
  Serious: Yes (Other)
  Sender: FDA-Public Use
  Company Number: JP-ASTELLAS-2020JP005635

PATIENT
  Age: 36 Year
  Sex: Male

DRUGS (4)
  1. XOSPATA [Suspect]
     Active Substance: GILTERITINIB
     Indication: Acute myeloid leukaemia refractory
     Route: 048
  2. XOSPATA [Suspect]
     Active Substance: GILTERITINIB
     Route: 048
  3. URSO [Concomitant]
     Active Substance: URSODIOL
     Indication: Hepatic function abnormal
     Dosage: UNK UNK, UNKNOWN FREQ.
     Route: 065
  4. Glycyron [Concomitant]
     Indication: Hepatic function abnormal
     Dosage: UNK UNK, UNKNOWN FREQ.
     Route: 065

REACTIONS (2)
  - Differentiation syndrome [Not Recovered/Not Resolved]
  - Hepatic function abnormal [Not Recovered/Not Resolved]
